FAERS Safety Report 15395547 (Version 1)
Quarter: 2018Q3

REPORT INFORMATION
  Report Type: Spontaneous
  Country: US (occurrence: US)
  Receive Date: 20180911
  Receipt Date: 20180911
  Transmission Date: 20181010
  Serious: Yes (Hospitalization)
  Sender: FDA-Public Use
  Company Number: None

PATIENT
  Age: 9 Year
  Sex: Female
  Weight: 27.3 kg

DRUGS (6)
  1. DEXAMETHASONE. [Suspect]
     Active Substance: DEXAMETHASONE
     Dates: end: 20180723
  2. METHOTREXATE. [Suspect]
     Active Substance: METHOTREXATE
     Dates: end: 20180716
  3. VINCRISTINE SULFATE. [Suspect]
     Active Substance: VINCRISTINE SULFATE
     Dates: end: 20180716
  4. CYTARABINE. [Suspect]
     Active Substance: CYTARABINE
     Dates: end: 20180709
  5. DAUNORUBICIN [Suspect]
     Active Substance: DAUNORUBICIN
     Dates: end: 20180716
  6. ONCASPAR [Suspect]
     Active Substance: PEGASPARGASE
     Dates: end: 20180712

REACTIONS (17)
  - Pyrexia [None]
  - Gaze palsy [None]
  - Tachycardia [None]
  - Hypotension [None]
  - Abdominal pain [None]
  - Escherichia test positive [None]
  - Clostridium test positive [None]
  - Waist circumference increased [None]
  - Cerebral atrophy [None]
  - Posterior reversible encephalopathy syndrome [None]
  - Tonic clonic movements [None]
  - Seizure [None]
  - Unresponsive to stimuli [None]
  - Agonal death struggle [None]
  - Tachypnoea [None]
  - Colitis [None]
  - Ejection fraction decreased [None]

NARRATIVE: CASE EVENT DATE: 20180723
